FAERS Safety Report 21244542 (Version 1)
Quarter: 2022Q3

REPORT INFORMATION
  Report Type: Report from Study
  Country: MX (occurrence: None)
  Receive Date: 20220823
  Receipt Date: 20220823
  Transmission Date: 20221027
  Serious: Yes (Disabling)
  Sender: FDA-Public Use
  Company Number: MX-ROCHE-2673471

PATIENT
  Age: 61 Year
  Sex: Male
  Weight: 58 kg

DRUGS (16)
  1. FARICIMAB [Suspect]
     Active Substance: FARICIMAB
     Indication: Diabetic retinal oedema
     Dosage: ON 12/MAY/2020 AT 14:20, THE PATIENT RECEIVED THE MOST RECENT DOSE OF FARICIMAB PRIOR TO SERIOUS ADV
     Route: 050
     Dates: start: 20190704
  2. FARICIMAB [Suspect]
     Active Substance: FARICIMAB
     Indication: Diabetic retinal oedema
     Dosage: ON 12/MAY/2020 AT 14:20, THE PATIENT RECEIVED THE MOST RECENT DOSE OF PLACEBO PRIOR TO SERIOUS ADVER
     Route: 050
     Dates: start: 20190704
  3. GLYBURIDE [Concomitant]
     Active Substance: GLYBURIDE
     Indication: Diabetes mellitus
     Route: 048
     Dates: start: 1998
  4. METFORMIN [Concomitant]
     Active Substance: METFORMIN HYDROCHLORIDE
     Indication: Diabetes mellitus
     Route: 048
     Dates: start: 1998
  5. VITAMIN B COMPLEX [Concomitant]
     Active Substance: CYANOCOBALAMIN\DEXPANTHENOL\NIACINAMIDE\PYRIDOXINE HYDROCHLORIDE\RIBOFLAVIN 5^-PHOSPHATE SODIUM\THIA
     Indication: Diabetic neuropathy
     Route: 048
     Dates: start: 2017
  6. FOLIC ACID [Concomitant]
     Active Substance: FOLIC ACID
     Indication: Diabetic neuropathy
     Route: 048
     Dates: start: 2017
  7. BRIMONIDINE TARTRATE\DORZOLAMIDE HYDROCHLORIDE\TIMOLOL MALEATE [Concomitant]
     Active Substance: BRIMONIDINE TARTRATE\DORZOLAMIDE HYDROCHLORIDE\TIMOLOL MALEATE
     Indication: Scleritis
     Route: 061
     Dates: start: 20200311, end: 20200525
  8. BRIMONIDINE TARTRATE\DORZOLAMIDE HYDROCHLORIDE\TIMOLOL MALEATE [Concomitant]
     Active Substance: BRIMONIDINE TARTRATE\DORZOLAMIDE HYDROCHLORIDE\TIMOLOL MALEATE
     Indication: Ocular hypertension
     Route: 061
     Dates: start: 20201016
  9. PREDNISOLONE [Concomitant]
     Active Substance: PREDNISOLONE
     Indication: Scleritis
     Route: 061
     Dates: start: 20200311, end: 20200512
  10. PREDNISOLONE [Concomitant]
     Active Substance: PREDNISOLONE
     Indication: Iritis
  11. SODIUM HYALURONATE [Concomitant]
     Active Substance: HYALURONATE SODIUM
     Indication: Scleritis
     Route: 061
     Dates: start: 20200311, end: 20210508
  12. DORZOLAMIDE\TIMOLOL [Concomitant]
     Active Substance: DORZOLAMIDE\TIMOLOL
     Indication: Ocular hypertension
     Route: 061
     Dates: start: 20201001, end: 20201016
  13. ACETAZOLAMIDE [Concomitant]
     Active Substance: ACETAZOLAMIDE
     Indication: Ocular hypertension
     Route: 048
     Dates: start: 20201016
  14. BROMFENAC [Concomitant]
     Active Substance: BROMFENAC SODIUM
     Indication: Iritis
     Route: 061
     Dates: start: 20191121, end: 20191218
  15. ELIPTIC [Concomitant]
     Indication: Iritis
     Route: 061
     Dates: start: 20191121, end: 20200311
  16. DICLOFENAC [Concomitant]
     Active Substance: DICLOFENAC
     Indication: Scleritis
     Route: 048
     Dates: start: 20200311, end: 20200325

REACTIONS (1)
  - Scleritis [Recovering/Resolving]

NARRATIVE: CASE EVENT DATE: 20191121
